FAERS Safety Report 8434575-2 (Version None)
Quarter: 2012Q2

REPORT INFORMATION
  Report Type: 
  Country: None (occurrence: None)
  Receive Date: 20120614
  Receipt Date: 20120608
  Transmission Date: 20120825
  Serious: No
  Sender: FDA-Public Use
  Company Number: US-BIOGENIDEC-2012BI020409

PATIENT
  Age: 61 Year
  Sex: Female

DRUGS (3)
  1. ZOFRAN [Concomitant]
     Indication: NAUSEA
  2. TYSABRI [Suspect]
     Indication: MULTIPLE SCLEROSIS
     Route: 042
     Dates: start: 20120604
  3. RELPAX [Concomitant]
     Indication: HEADACHE

REACTIONS (8)
  - HEADACHE [None]
  - VISION BLURRED [None]
  - DEPRESSED MOOD [None]
  - MUSCLE TIGHTNESS [None]
  - DEHYDRATION [None]
  - NECK PAIN [None]
  - DIZZINESS [None]
  - LETHARGY [None]
